FAERS Safety Report 21670944 (Version 3)
Quarter: 2023Q1

REPORT INFORMATION
  Report Type: Spontaneous
  Country: US (occurrence: US)
  Receive Date: 20221202
  Receipt Date: 20230321
  Transmission Date: 20230418
  Serious: Yes (Hospitalization, Other)
  Sender: FDA-Public Use
  Company Number: US-NOVOPROD-984383

PATIENT
  Age: 59 Year
  Sex: Female

DRUGS (1)
  1. LEVEMIR [Suspect]
     Active Substance: INSULIN DETEMIR
     Indication: Type 2 diabetes mellitus
     Dosage: 63 IU, QD (38 IU AM AND 25 IU PM)
     Route: 058

REACTIONS (2)
  - Cerebral infarction [Unknown]
  - Brain stem infarction [Unknown]

NARRATIVE: CASE EVENT DATE: 20210510
